FAERS Safety Report 14338529 (Version 3)
Quarter: 2018Q1

REPORT INFORMATION
  Report Type: Spontaneous
  Country: BE (occurrence: BE)
  Receive Date: 20171229
  Receipt Date: 20180307
  Transmission Date: 20180509
  Serious: Yes (Hospitalization)
  Sender: FDA-Public Use
  Company Number: BE-TEVA-2017-BE-838479

PATIENT
  Age: 71 Year
  Sex: Female
  Weight: 58 kg

DRUGS (17)
  1. FEROGRAD-500 [Concomitant]
     Route: 048
     Dates: start: 20161109
  2. IMODIUM [Concomitant]
     Active Substance: LOPERAMIDE HYDROCHLORIDE
     Dosage: AS NECESSARY
     Route: 048
     Dates: start: 20171018
  3. PROLIA [Concomitant]
     Active Substance: DENOSUMAB
     Dosage: 60 MG/ML: 1 ML
     Route: 058
  4. ATROPINE. [Concomitant]
     Active Substance: ATROPINE
     Dosage: AS NECESSARY
     Route: 058
     Dates: start: 20171004
  5. AFLIBERCEPT [Suspect]
     Active Substance: AFLIBERCEPT
     Indication: COLORECTAL CANCER METASTATIC
     Route: 042
     Dates: start: 20171004, end: 20171004
  6. ALOXI [Concomitant]
     Active Substance: PALONOSETRON HYDROCHLORIDE
     Route: 042
     Dates: start: 20171004
  7. PANTOPRAZOLE [Concomitant]
     Active Substance: PANTOPRAZOLE
     Dosage: 10 MILLIGRAM DAILY;
     Route: 048
     Dates: start: 20170927
  8. BETMIGA [Concomitant]
     Active Substance: MIRABEGRON
     Route: 048
     Dates: start: 20171018
  9. AACIDEXAM [Concomitant]
     Active Substance: DEXAMETHASONE
     Route: 042
     Dates: start: 20171004
  10. DAFALGAN FORTE [Concomitant]
     Route: 048
     Dates: start: 20161109
  11. CACIT D3 [Concomitant]
     Active Substance: CALCIUM\CHOLECALCIFEROL
     Dosage: 1000 MG/880IE
     Route: 048
  12. LEUCOVORIN. [Suspect]
     Active Substance: LEUCOVORIN
     Indication: COLORECTAL CANCER METASTATIC
     Route: 042
  13. IRINOTECAN LIPOSOME [Suspect]
     Active Substance: IRINOTECAN
     Indication: COLORECTAL CANCER METASTATIC
     Route: 042
  14. IRINOTECAN LIPOSOME [Suspect]
     Active Substance: IRINOTECAN
     Indication: OFF LABEL USE
  15. AFLIBERCEPT [Suspect]
     Active Substance: AFLIBERCEPT
     Route: 042
     Dates: start: 20171004, end: 20171004
  16. MOVICOL [Concomitant]
     Active Substance: POLYETHYLENE GLYCOL 3350\POTASSIUM CHLORIDE\SODIUM BICARBONATE\SODIUM CHLORIDE
     Route: 048
     Dates: start: 20161109
  17. FLUOROURACIL. [Suspect]
     Active Substance: FLUOROURACIL
     Indication: COLORECTAL CANCER METASTATIC
     Route: 042

REACTIONS (4)
  - Off label use [Unknown]
  - General physical health deterioration [Unknown]
  - Decreased appetite [Unknown]
  - Hypocalcaemia [Unknown]

NARRATIVE: CASE EVENT DATE: 20171108
